FAERS Safety Report 22812685 (Version 3)
Quarter: 2023Q4

REPORT INFORMATION
  Report Type: Report from Study
  Country: US (occurrence: US)
  Receive Date: 20230811
  Receipt Date: 20231013
  Transmission Date: 20240110
  Serious: Yes (Hospitalization, Other)
  Sender: FDA-Public Use
  Company Number: US-JAZZ PHARMACEUTICALS-2023-US-016996

PATIENT
  Sex: Male

DRUGS (3)
  1. EPIDIOLEX [Suspect]
     Active Substance: CANNABIDIOL
     Indication: Infantile spasms
     Dosage: 0.2 MILLILITER, BID
     Route: 048
     Dates: start: 20230706
  2. EPIDIOLEX [Suspect]
     Active Substance: CANNABIDIOL
     Dosage: 0.4 MILLILITER, BID
     Route: 048
     Dates: start: 202308
  3. EPIDIOLEX [Suspect]
     Active Substance: CANNABIDIOL
     Dosage: 0.5 MILLILITER, BID

REACTIONS (4)
  - Surgery [Unknown]
  - Hospitalisation [Not Recovered/Not Resolved]
  - Off label use [Unknown]
  - Product administration interrupted [Unknown]
